FAERS Safety Report 5358458-X (Version None)
Quarter: 2007Q2

REPORT INFORMATION
  Report Type: 
  Country: None (occurrence: None)
  Receive Date: 20070601
  Receipt Date: 20070303
  Transmission Date: 20071010
  Serious: No
  Sender: FDA-Public Use
  Company Number: PHEH2007US02746

PATIENT
  Age: 66 Year
  Sex: Male

DRUGS (1)
  1. ENABLEX [Suspect]
     Indication: HYPERTONIC BLADDER

REACTIONS (3)
  - POLLAKIURIA [None]
  - URINE FLOW DECREASED [None]
  - URINE OUTPUT DECREASED [None]
